FAERS Safety Report 8152692-1 (Version None)
Quarter: 2012Q1

REPORT INFORMATION
  Report Type: 
  Country: None (occurrence: None)
  Receive Date: 20120216
  Receipt Date: 20120216
  Transmission Date: 20120608
  Serious: Yes (Death)
  Sender: FDA-Public Use
  Company Number: None

PATIENT
  Age: 59 Year
  Sex: Female

DRUGS (2)
  1. REVLIMID [Suspect]
     Indication: MULTIPLE MYELOMA
     Dosage: 25MG X21/28D BY MOUTH
     Route: 048
     Dates: start: 20080401, end: 20081001
  2. REVLIMID [Suspect]
     Indication: MULTIPLE MYELOMA
     Dosage: 25MG X21/28D BY MOUTH
     Route: 048
     Dates: start: 20101101, end: 20110701

REACTIONS (8)
  - NEOPLASM PROGRESSION [None]
  - MULTIPLE MYELOMA [None]
  - PANCYTOPENIA [None]
  - SALMONELLA TEST POSITIVE [None]
  - THERAPEUTIC RESPONSE DECREASED [None]
  - MENINGITIS STREPTOCOCCAL [None]
  - NEURALGIA [None]
  - SEPSIS [None]
